FAERS Safety Report 23552076 (Version 9)
Quarter: 2025Q2

REPORT INFORMATION
  Report Type: Spontaneous
  Country: US (occurrence: US)
  Receive Date: 20240222
  Receipt Date: 20250604
  Transmission Date: 20250716
  Serious: Yes (Hospitalization, Other)
  Sender: TAKEDA
  Company Number: US-TAKEDA-2024TUS016236

PATIENT
  Age: 42 Year
  Sex: Female
  Weight: 59 kg

DRUGS (8)
  1. TAKHZYRO [Suspect]
     Active Substance: LANADELUMAB-FLYO
     Indication: Hereditary angioedema
     Dosage: UNK UNK, Q2WEEKS
     Dates: start: 20240122
  2. TAKHZYRO [Suspect]
     Active Substance: LANADELUMAB-FLYO
     Indication: Immune system disorder
     Dosage: 300 MILLIGRAM, Q2WEEKS
     Dates: start: 20240131
  3. TAKHZYRO [Suspect]
     Active Substance: LANADELUMAB-FLYO
     Dosage: 300 MILLIGRAM, Q2WEEKS
     Dates: start: 20240201
  4. TAKHZYRO [Suspect]
     Active Substance: LANADELUMAB-FLYO
     Dosage: UNK UNK, Q2WEEKS
  5. TAKHZYRO [Suspect]
     Active Substance: LANADELUMAB-FLYO
     Dosage: UNK UNK, Q2WEEKS
     Dates: end: 20240422
  6. TAKHZYRO [Suspect]
     Active Substance: LANADELUMAB-FLYO
     Dosage: 300 MILLIGRAM, QD
  7. TAKHZYRO [Suspect]
     Active Substance: LANADELUMAB-FLYO
  8. TAKHZYRO [Suspect]
     Active Substance: LANADELUMAB-FLYO
     Dosage: 300 MILLIGRAM, Q2WEEKS

REACTIONS (22)
  - Suicidal ideation [Unknown]
  - Seizure [Unknown]
  - Bradycardia [Unknown]
  - Blood sodium decreased [Unknown]
  - Cardiac disorder [Unknown]
  - Hereditary angioedema [Recovering/Resolving]
  - Myocardial infarction [Unknown]
  - Vomiting [Unknown]
  - Eye swelling [Recovered/Resolved]
  - Influenza [Unknown]
  - Nasopharyngitis [Unknown]
  - Swollen tongue [Recovered/Resolved]
  - Musculoskeletal chest pain [Unknown]
  - Swelling [Unknown]
  - Inability to afford medication [Unknown]
  - Head injury [Unknown]
  - Product dose omission issue [Unknown]
  - COVID-19 [Unknown]
  - Protein urine present [Unknown]
  - Liver function test increased [Unknown]
  - Blood glucose decreased [Unknown]
  - Blood iron increased [Unknown]

NARRATIVE: CASE EVENT DATE: 20240216
